FAERS Safety Report 5565117-7 (Version None)
Quarter: 2007Q4

REPORT INFORMATION
  Report Type: 
  Country: None (occurrence: None)
  Receive Date: 20071218
  Receipt Date: 20071213
  Transmission Date: 20080405
  Serious: Yes (Death)
  Sender: FDA-Public Use
  Company Number: GB-ASTRAZENECA-2007GB02570

PATIENT

DRUGS (2)
  1. SEROQUEL [Suspect]
     Route: 048
  2. CIPRAMIL [Concomitant]
     Indication: DEPRESSION

REACTIONS (1)
  - DEATH [None]
